FAERS Safety Report 8831140 (Version 3)
Quarter: 2013Q1

REPORT INFORMATION
  Report Type: Report from Study
  Country: GB (occurrence: GB)
  Receive Date: 20121009
  Receipt Date: 20130207
  Transmission Date: 20140127
  Serious: Yes (Other)
  Sender: FDA-Public Use
  Company Number: GB-JNJFOC-20121003435

PATIENT
  Age: 63 Year
  Sex: Female

DRUGS (2)
  1. REMICADE [Suspect]
     Indication: RHEUMATOID ARTHRITIS
     Route: 042
     Dates: start: 20011003, end: 20080915
  2. METHOTREXATE [Concomitant]

REACTIONS (2)
  - Malignant melanoma [Recovered/Resolved with Sequelae]
  - Malignant melanoma in situ [Recovered/Resolved]
